FAERS Safety Report 19886346 (Version 2)
Quarter: 2021Q4

REPORT INFORMATION
  Report Type: Spontaneous
  Country: US (occurrence: US)
  Receive Date: 20210928
  Receipt Date: 20211103
  Transmission Date: 20220303
  Serious: No
  Sender: FDA-Public Use
  Company Number: US-GLAXOSMITHKLINE-USCH2021066171

PATIENT
  Sex: Female

DRUGS (3)
  1. ADVIL SINUS CONGESTION AND PAIN [Suspect]
     Active Substance: IBUPROFEN\PHENYLEPHRINE HYDROCHLORIDE
     Indication: Product used for unknown indication
     Dosage: UNK
  2. HEDERA HELIX LEAF [Suspect]
     Active Substance: HEDERA HELIX LEAF
     Indication: Cough
     Dosage: UNK
  3. HEDERA HELIX LEAF [Suspect]
     Active Substance: HEDERA HELIX LEAF
     Indication: Productive cough

REACTIONS (4)
  - Dysphagia [Unknown]
  - Product use in unapproved indication [Unknown]
  - Drug effective for unapproved indication [Unknown]
  - Therapeutic product effect incomplete [Unknown]
